FAERS Safety Report 13599232 (Version 1)
Quarter: 2017Q2

REPORT INFORMATION
  Report Type: Spontaneous
  Country: FR (occurrence: FR)
  Receive Date: 20170531
  Receipt Date: 20170531
  Transmission Date: 20170830
  Serious: Yes (Hospitalization)
  Sender: FDA-Public Use
  Company Number: PHHY2017FR077736

PATIENT
  Age: 16 Year
  Sex: Female

DRUGS (10)
  1. IFOSFAMIDE. [Concomitant]
     Active Substance: IFOSFAMIDE
     Indication: OSTEOSARCOMA
     Route: 065
     Dates: start: 20170424
  2. CALCIUM FOLINATE [Concomitant]
     Active Substance: LEUCOVORIN CALCIUM
     Indication: PRODUCT USED FOR UNKNOWN INDICATION
     Route: 065
  3. ONDANSETRON ACCORD [Suspect]
     Active Substance: ONDANSETRON
     Indication: NAUSEA
     Dosage: 8 MG, BID
     Route: 042
     Dates: start: 20170403, end: 20170406
  4. ONDANSETRON ACCORD [Suspect]
     Active Substance: ONDANSETRON
     Dosage: 8 MG, BID
     Route: 042
     Dates: start: 20170410, end: 20170414
  5. ATARAX [Concomitant]
     Active Substance: HYDROXYZINE HYDROCHLORIDE
     Indication: PRODUCT USED FOR UNKNOWN INDICATION
     Route: 065
  6. ONDANSETRON ACCORD [Suspect]
     Active Substance: ONDANSETRON
     Dosage: 8 MG, BID
     Route: 042
     Dates: start: 20170424, end: 20170428
  7. ZOPHREN [Suspect]
     Active Substance: ONDANSETRON
     Indication: NAUSEA
     Dosage: 8 MG, QD
     Route: 048
     Dates: start: 20170422, end: 20170423
  8. UTROGESTAN [Concomitant]
     Active Substance: PROGESTERONE
     Indication: PRODUCT USED FOR UNKNOWN INDICATION
     Route: 065
  9. ONDANSETRON ACCORD [Suspect]
     Active Substance: ONDANSETRON
     Dosage: 8 MG, QD
     Route: 042
     Dates: start: 20170417, end: 20170419
  10. ETOPOSIDE. [Concomitant]
     Active Substance: ETOPOSIDE
     Indication: OSTEOSARCOMA
     Route: 065
     Dates: start: 20170424

REACTIONS (1)
  - Muscle tightness [Recovered/Resolved]

NARRATIVE: CASE EVENT DATE: 20170422
